FAERS Safety Report 10744576 (Version 2)
Quarter: 2015Q1

REPORT INFORMATION
  Report Type: Report from Study
  Country: JP (occurrence: JP)
  Receive Date: 20150128
  Receipt Date: 20150317
  Transmission Date: 20150721
  Serious: Yes (Hospitalization)
  Sender: FDA-Public Use
  Company Number: JP-NAPPMUNDI-GBR-2015-0025091

PATIENT
  Age: 89 Year
  Sex: Female
  Weight: 38.4 kg

DRUGS (8)
  1. CALBLOCK [Concomitant]
     Active Substance: AZELNIDIPINE
     Indication: HYPERTENSION
     Dosage: 1 DF, DAILY
     Route: 048
  2. SOLON [Concomitant]
     Active Substance: SOFALCONE
     Indication: GASTRITIS
     Dosage: 1.5 G, DAILY
     Route: 048
  3. FAMOTIDINE. [Concomitant]
     Active Substance: FAMOTIDINE
     Indication: GASTRITIS
     Dosage: 2 DF, DAILY
     Route: 048
  4. FEROTYM [Concomitant]
     Active Substance: FERROUS CITRATE\SODIUM
     Indication: ANAEMIA
     Dosage: 2 DF, DAILY
     Route: 048
  5. BTDS PATCH [Suspect]
     Active Substance: BUPRENORPHINE
     Indication: ANALGESIC THERAPY
     Dosage: 10 MCG, Q1H
     Route: 062
     Dates: start: 20140626, end: 20140805
  6. BTDS PATCH [Suspect]
     Active Substance: BUPRENORPHINE
     Dosage: 5 MCG, Q1H
     Route: 062
     Dates: start: 20140529, end: 20140626
  7. HALCION [Concomitant]
     Active Substance: TRIAZOLAM
     Indication: INSOMNIA
     Dosage: 1 DF, DAILY
     Route: 048
  8. MAGMITT [Concomitant]
     Active Substance: MAGNESIUM OXIDE
     Indication: CONSTIPATION
     Dosage: 6 DF, DAILY
     Route: 048

REACTIONS (2)
  - Femur fracture [Recovered/Resolved]
  - Fall [None]

NARRATIVE: CASE EVENT DATE: 20140805
